FAERS Safety Report 26159829 (Version 1)
Quarter: 2025Q4

REPORT INFORMATION
  Report Type: Spontaneous
  Country: US (occurrence: US)
  Receive Date: 20251216
  Receipt Date: 20251216
  Transmission Date: 20260118
  Serious: No
  Sender: RANBAXY
  Company Number: US-SUN PHARMACEUTICAL INDUSTRIES LTD-2025R1-540074

PATIENT
  Sex: Female

DRUGS (1)
  1. LISDEXAMFETAMINE [Suspect]
     Active Substance: LISDEXAMFETAMINE
     Indication: Lethargy
     Dosage: UNK
     Route: 065

REACTIONS (4)
  - Recalled product administered [Unknown]
  - Off label use [Unknown]
  - Lethargy [Unknown]
  - Therapeutic response unexpected [Unknown]
